FAERS Safety Report 4918698-8 (Version None)
Quarter: 2006Q1

REPORT INFORMATION
  Report Type: 
  Country: None (occurrence: None)
  Receive Date: 20060222
  Receipt Date: 20060215
  Transmission Date: 20060701
  Serious: Yes (Other)
  Sender: FDA-Public Use
  Company Number: AU-AVENTIS-200611400GDDC

PATIENT
  Age: 83 Year
  Sex: Female

DRUGS (7)
  1. ARAVA [Suspect]
     Indication: RHEUMATOID ARTHRITIS
     Route: 048
     Dates: start: 20000101, end: 20060104
  2. METHOTREXATE [Concomitant]
     Dosage: DOSE: UNK
  3. CELECOXIB [Concomitant]
     Dosage: DOSE: UNK
  4. FEFOL [Concomitant]
     Dosage: DOSE: UNK
  5. CALTRATE [Concomitant]
     Dosage: DOSE: UNK
  6. VIT B COMPLEX [Concomitant]
     Dosage: DOSE: UNK
  7. ZANIDIP [Concomitant]
     Dosage: DOSE: UNK

REACTIONS (2)
  - HEPATIC ENZYME INCREASED [None]
  - PNEUMONIA [None]
